FAERS Safety Report 4711130-9 (Version None)
Quarter: 2005Q3

REPORT INFORMATION
  Report Type: 
  Country: None (occurrence: None)
  Receive Date: 20050708
  Receipt Date: 20050628
  Transmission Date: 20060218
  Serious: Yes (Hospitalization, Other)
  Sender: FDA-Public Use
  Company Number: HQWYE774428JUN05

PATIENT
  Age: 64 Year
  Sex: Male

DRUGS (9)
  1. CORDARONE [Suspect]
     Indication: VENTRICULAR TACHYCARDIA
     Dosage: SEE IMAGE
     Route: 048
     Dates: start: 20050108, end: 20050115
  2. CORDARONE [Suspect]
     Indication: VENTRICULAR TACHYCARDIA
     Dosage: SEE IMAGE
     Route: 048
     Dates: start: 20050116, end: 20050119
  3. ASPIRIN [Concomitant]
  4. METOPROLOL TARTRATE [Concomitant]
  5. RAMIPRIL [Concomitant]
  6. AQUAPHOR (XIPAMIDE) [Concomitant]
  7. LOCOL (FLUVASTATIN SODIUM) [Concomitant]
  8. PRIMIDONE [Concomitant]
  9. PANTOPRAZOLE SODIUM [Concomitant]

REACTIONS (5)
  - CEREBRAL DISORDER [None]
  - DELIRIUM [None]
  - HYPOPERFUSION [None]
  - MANIA [None]
  - RESTLESSNESS [None]
